FAERS Safety Report 10424987 (Version 1)
Quarter: 2014Q3

REPORT INFORMATION
  Report Type: Spontaneous
  Country: US (occurrence: None)
  Receive Date: 20140725
  Receipt Date: 20140725
  Transmission Date: 20150326
  Serious: No
  Sender: FDA-Public Use
  Company Number: AP356-00592-SPO-US

PATIENT
  Age: 46 Year
  Sex: Female

DRUGS (3)
  1. NASACORT (TRIAMCINOLONE ACETONIDE) [Concomitant]
  2. VITAMIN D (ERGOCALCIFEROL) [Concomitant]
     Active Substance: ERGOCALCIFEROL
  3. BELVIQ [Suspect]
     Active Substance: LORCASERIN HYDROCHLORIDE
     Indication: WEIGHT DECREASED
     Dosage: 1 IN 1 D
     Dates: start: 20140321, end: 20140325

REACTIONS (2)
  - Nipple pain [None]
  - Myalgia [None]

NARRATIVE: CASE EVENT DATE: 20140329
